FAERS Safety Report 12975700 (Version 1)
Quarter: 2016Q4

REPORT INFORMATION
  Report Type: Report from Study
  Country: NL (occurrence: NL)
  Receive Date: 20161125
  Receipt Date: 20161125
  Transmission Date: 20170207
  Serious: Yes (Hospitalization)
  Sender: FDA-Public Use
  Company Number: NL-IPSEN BIOPHARMACEUTICALS, INC.-2016-09259

PATIENT
  Age: 56 Year
  Sex: Female

DRUGS (2)
  1. SOMATULINE AUTOGEL [Suspect]
     Active Substance: LANREOTIDE ACETATE
     Indication: OFF LABEL USE
  2. SOMATULINE AUTOGEL [Suspect]
     Active Substance: LANREOTIDE ACETATE
     Indication: CONGENITAL CYSTIC KIDNEY DISEASE
     Dosage: 120 MG
     Route: 058
     Dates: start: 20150612, end: 2016

REACTIONS (5)
  - Feeling abnormal [Not Recovered/Not Resolved]
  - Off label use [Unknown]
  - Inflammatory marker increased [Unknown]
  - Malaise [Unknown]
  - Hepatic cyst infection [Unknown]

NARRATIVE: CASE EVENT DATE: 2016
